FAERS Safety Report 6651990-8 (Version None)
Quarter: 2010Q1

REPORT INFORMATION
  Report Type: 
  Country: None (occurrence: None)
  Receive Date: 20100325
  Receipt Date: 20100323
  Transmission Date: 20100710
  Serious: Yes (Death)
  Sender: FDA-Public Use
  Company Number: PHHY2010BR17612

PATIENT
  Sex: Female

DRUGS (4)
  1. DIOVAN [Suspect]
     Dosage: 80 MG, UNK
     Route: 048
  2. DIOVAN [Suspect]
     Dosage: 320/10 MG
     Route: 048
  3. DIOVAN HCT [Suspect]
     Dosage: 160/12.5 MG
     Route: 048
  4. DIOVAN HCT [Suspect]
     Dosage: 160/25 MG
     Route: 048

REACTIONS (1)
  - DEATH [None]
